FAERS Safety Report 5528111-8 (Version None)
Quarter: 2007Q4

REPORT INFORMATION
  Report Type: 
  Country: None (occurrence: None)
  Receive Date: 20071128
  Receipt Date: 20071119
  Transmission Date: 20080405
  Serious: Yes (Death)
  Sender: FDA-Public Use
  Company Number: US-PURDUE-USA_2007_0030178

PATIENT
  Age: 89 Year
  Sex: Male

DRUGS (1)
  1. OXYIR CAPSULES 5 MG [Suspect]
     Indication: PAIN
     Dosage: 5 MG, PRN
     Route: 048

REACTIONS (1)
  - CARDIO-RESPIRATORY ARREST [None]
